FAERS Safety Report 12410529 (Version 2)
Quarter: 2016Q4

REPORT INFORMATION
  Report Type: Spontaneous
  Country: IL (occurrence: IL)
  Receive Date: 20160527
  Receipt Date: 20161006
  Transmission Date: 20170207
  Serious: Yes (Death, Hospitalization, Other)
  Sender: FDA-Public Use
  Company Number: IL-ASTRAZENECA-2016SE56465

PATIENT
  Age: 67 Year
  Sex: Female

DRUGS (6)
  1. SEROQUEL [Suspect]
     Active Substance: QUETIAPINE FUMARATE
     Indication: ACUTE PSYCHOSIS
     Dosage: 12.5 MG TWICE DAILY AND THE NEXT DAY 50 MG TWICE DAILY
     Route: 048
  2. DIAZEPAM. [Concomitant]
     Active Substance: DIAZEPAM
     Indication: URINARY TRACT INFECTION
  3. VALPROIC ACID. [Concomitant]
     Active Substance: VALPROIC ACID
     Indication: URINARY TRACT INFECTION
  4. CARBIDOPA+LEVODOPA [Concomitant]
     Indication: PARKINSON^S DISEASE
  5. HALOPERIDOL. [Concomitant]
     Active Substance: HALOPERIDOL
     Route: 030
  6. CEFTRIAXONE. [Concomitant]
     Active Substance: CEFTRIAXONE
     Indication: URINARY TRACT INFECTION

REACTIONS (4)
  - Multiple organ dysfunction syndrome [Fatal]
  - Neuroleptic malignant syndrome [Fatal]
  - Haematuria [Unknown]
  - Leukocyturia [Unknown]
